FAERS Safety Report 5288202-6 (Version None)
Quarter: 2007Q2

REPORT INFORMATION
  Report Type: 
  Country: None (occurrence: None)
  Receive Date: 20070405
  Receipt Date: 20070328
  Transmission Date: 20071010
  Serious: Yes (Other)
  Sender: FDA-Public Use
  Company Number: US-JNJFOC-20070307148

PATIENT
  Sex: Male
  Weight: 106.6 kg

DRUGS (3)
  1. TYLOX [Suspect]
     Indication: BONE PAIN
  2. ACTIQ [Suspect]
     Indication: BREAKTHROUGH PAIN
     Route: 002
  3. MICARDIS HCTZ [Concomitant]
     Indication: HYPERTENSION

REACTIONS (2)
  - ALANINE AMINOTRANSFERASE INCREASED [None]
  - NAUSEA [None]
